FAERS Safety Report 24992787 (Version 1)
Quarter: 2025Q1

REPORT INFORMATION
  Report Type: Spontaneous
  Country: ES (occurrence: ES)
  Receive Date: 20250221
  Receipt Date: 20250221
  Transmission Date: 20250408
  Serious: Yes (Life-Threatening, Other)
  Sender: NOVO NORDISK
  Company Number: ES-NOVOPROD-1368990

PATIENT
  Age: 60 Year

DRUGS (3)
  1. NOVOEIGHT [Suspect]
     Active Substance: ANTIHEMOPHILIC FACTOR, HUMAN RECOMBINANT
     Indication: Haemophilia A without inhibitors
  2. EMICIZUMAB [Concomitant]
     Active Substance: EMICIZUMAB
     Indication: Haemophilia A without inhibitors
  3. DOLUTEGRAVIR\EMTRICITABINE\TENOFOVIR ALAFENAMIDE [Concomitant]
     Active Substance: DOLUTEGRAVIR\EMTRICITABINE\TENOFOVIR ALAFENAMIDE
     Indication: HIV infection WHO clinical stage III

REACTIONS (3)
  - Hepatocellular carcinoma [Unknown]
  - Hepatic fibrosis [Unknown]
  - Hepatic cirrhosis [Unknown]

NARRATIVE: CASE EVENT DATE: 20241201
